FAERS Safety Report 8009134-6 (Version None)
Quarter: 2011Q4

REPORT INFORMATION
  Report Type: 
  Country: None (occurrence: None)
  Receive Date: 20111227
  Receipt Date: 20111215
  Transmission Date: 20120403
  Serious: Yes (Death)
  Sender: FDA-Public Use
  Company Number: US-MYLANLABS-2009S1000023

PATIENT
  Age: 27 Year
  Sex: Male
  Weight: 64.41 kg

DRUGS (12)
  1. FENTANYL-100 [Suspect]
     Indication: PAIN
     Dosage: CHANGE Q3D
     Route: 062
     Dates: start: 20061231, end: 20070105
  2. TRAMADOL HCL [Concomitant]
  3. ACETAMINOPHEN AND HYDROCODONE BITARTRATE [Concomitant]
     Dosage: 5MG/500MG
  4. OXYCODONE HCL [Suspect]
     Indication: PAIN
  5. AMBIEN [Concomitant]
  6. IBUPROFEN [Concomitant]
  7. LORAZEPAM [Concomitant]
  8. GABAPENTIN [Concomitant]
  9. CLONAZEPAM [Concomitant]
  10. OXYCODONE/ACETAMINOPHEN [Concomitant]
     Dosage: 5MG/325MG
  11. PROPOXYPHENE HCL AND ACETAMINOPHEN [Concomitant]
     Dosage: 100MG/650MG
  12. METHYLPREDNISOLONE [Concomitant]

REACTIONS (2)
  - OVERDOSE [None]
  - TOXICITY TO VARIOUS AGENTS [None]
